FAERS Safety Report 18570223 (Version 1)
Quarter: 2020Q4

REPORT INFORMATION
  Report Type: Spontaneous
  Country: IN (occurrence: US)
  Receive Date: 20201202
  Receipt Date: 20201202
  Transmission Date: 20210114
  Serious: Yes (Hospitalization, Other)
  Sender: FDA-Public Use
  Company Number: US-ELI_LILLY_AND_COMPANY-US202011010237

PATIENT
  Age: 15 Year
  Sex: Female

DRUGS (2)
  1. GEMCITABINE HYDROCHLORIDE. [Suspect]
     Active Substance: GEMCITABINE HYDROCHLORIDE
     Indication: ACINAR CELL CARCINOMA OF PANCREAS
     Dosage: 28-DAY CYCLES
     Route: 065
  2. PACLITAXEL. [Suspect]
     Active Substance: PACLITAXEL
     Indication: ACINAR CELL CARCINOMA OF PANCREAS
     Dosage: 28-DAY CYCLES
     Route: 042

REACTIONS (4)
  - Neutropenia [Unknown]
  - Pyrexia [Unknown]
  - Toxicity to various agents [Unknown]
  - Off label use [Unknown]
